FAERS Safety Report 7124314-X (Version None)
Quarter: 2010Q4

REPORT INFORMATION
  Report Type: 
  Country: None (occurrence: None)
  Receive Date: 20101126
  Receipt Date: 20101117
  Transmission Date: 20110411
  Serious: Yes (Other)
  Sender: FDA-Public Use
  Company Number: PHHY2010US56241

PATIENT
  Sex: Male
  Weight: 82.993 kg

DRUGS (11)
  1. EXTAVIA [Suspect]
     Indication: MULTIPLE SCLEROSIS
     Dosage: 0.187 MG, QOD
     Route: 058
     Dates: start: 20100716
  2. EXTAVIA [Suspect]
     Dosage: 0.25 MG, QOD
     Route: 058
     Dates: start: 20100716
  3. METHADONE [Concomitant]
  4. PERCOCET [Concomitant]
  5. BACLOFEN [Concomitant]
  6. VITAMIN D3 [Concomitant]
  7. ASCORBIC ACID [Concomitant]
  8. MAGNESIUM [Concomitant]
  9. CALCIUM [Concomitant]
  10. FISH OIL [Concomitant]
  11. MULTI-VITAMIN [Concomitant]
     Dosage: UNK

REACTIONS (13)
  - ABDOMINAL DISTENSION [None]
  - ASTHENIA [None]
  - EYE IRRITATION [None]
  - FATIGUE [None]
  - GASTRIC DISORDER [None]
  - HEADACHE [None]
  - HYPOAESTHESIA [None]
  - INFLUENZA [None]
  - MUSCLE SPASMS [None]
  - MUSCULOSKELETAL STIFFNESS [None]
  - SLEEP DISORDER [None]
  - VISION BLURRED [None]
  - WEIGHT INCREASED [None]
